FAERS Safety Report 10921446 (Version 1)
Quarter: 2015Q1

REPORT INFORMATION
  Report Type: Spontaneous
  Country: DE (occurrence: None)
  Receive Date: 20150312
  Receipt Date: 20150312
  Transmission Date: 20150721
  Serious: Yes (Other)
  Sender: FDA-Public Use
  Company Number: 2015-000037

PATIENT
  Age: 71 Year
  Sex: Male

DRUGS (1)
  1. ACTONEL [Suspect]
     Active Substance: RISEDRONATE SODIUM
     Indication: OSTEOPOROSIS
     Route: 048
     Dates: start: 201409

REACTIONS (2)
  - Cardiovascular disorder [None]
  - Osteonecrosis [None]

NARRATIVE: CASE EVENT DATE: 20150105
